FAERS Safety Report 5246882-5 (Version None)
Quarter: 2007Q1

REPORT INFORMATION
  Report Type: 
  Country: None (occurrence: None)
  Receive Date: 20070226
  Receipt Date: 20070214
  Transmission Date: 20070707
  Serious: Yes (Other)
  Sender: FDA-Public Use
  Company Number: JP-PFIZER INC-2007012631

PATIENT
  Age: 27 Year
  Sex: Female

DRUGS (6)
  1. HALCION [Suspect]
     Route: 048
  2. ATARAX [Suspect]
     Route: 048
  3. ALL OTHER THERAPEUTIC PRODUCTS [Suspect]
  4. ANTIHISTAMINES [Suspect]
  5. ANTIBIOTICS [Suspect]
  6. ASPIRIN [Suspect]

REACTIONS (6)
  - COMA [None]
  - DYSPNOEA [None]
  - ELECTROENCEPHALOGRAM ABNORMAL [None]
  - PNEUMONIA ASPIRATION [None]
  - PYREXIA [None]
  - SUICIDE ATTEMPT [None]
